FAERS Safety Report 16154687 (Version 1)
Quarter: 2019Q2

REPORT INFORMATION
  Report Type: Spontaneous
  Country: US (occurrence: US)
  Receive Date: 20190403
  Receipt Date: 20190403
  Transmission Date: 20190711
  Serious: Yes (Hospitalization, Other)
  Sender: FDA-Public Use
  Company Number: PHHY2019US075209

PATIENT
  Age: 38 Year
  Sex: Male

DRUGS (1)
  1. SECUKINUMAB. [Suspect]
     Active Substance: SECUKINUMAB
     Indication: PSORIATIC ARTHROPATHY
     Route: 065

REACTIONS (10)
  - Cellulitis [Unknown]
  - Otitis externa [Unknown]
  - Ear pain [Recovering/Resolving]
  - Erythema [Unknown]
  - Streptococcal infection [Unknown]
  - Pseudomonas infection [Unknown]
  - Otorrhoea [Recovering/Resolving]
  - Swelling [Recovering/Resolving]
  - Hypoaesthesia [Unknown]
  - Deafness [Recovering/Resolving]
